FAERS Safety Report 16887970 (Version 2)
Quarter: 2019Q4

REPORT INFORMATION
  Report Type: Spontaneous
  Country: US (occurrence: US)
  Receive Date: 20191006
  Receipt Date: 20191101
  Transmission Date: 20200122
  Serious: No
  Sender: FDA-Public Use
  Company Number: US-EX USA HOLDINGS-EXHL20192388

PATIENT
  Age: 44 Year
  Sex: Female
  Weight: 112.59 kg

DRUGS (3)
  1. ESTARYLLA [Suspect]
     Active Substance: ETHINYL ESTRADIOL\NORGESTIMATE
     Indication: ORAL CONTRACEPTION
     Dosage: 1
     Route: 048
  2. ESTARYLLA [Suspect]
     Active Substance: ETHINYL ESTRADIOL\NORGESTIMATE
     Indication: MENSTRUATION IRREGULAR
  3. UNKNOWN BIRTH CONTROL [Suspect]
     Active Substance: UNSPECIFIED INGREDIENT
     Indication: CONTRACEPTION
     Dosage: UNKNOWN
     Route: 065
     Dates: start: 2003

REACTIONS (8)
  - Eye swelling [Unknown]
  - Product use in unapproved indication [None]
  - Adverse drug reaction [Unknown]
  - Erythema [Unknown]
  - Swelling face [Unknown]
  - Chemical burn of skin [Unknown]
  - Product substitution issue [None]
  - Pruritus [Unknown]

NARRATIVE: CASE EVENT DATE: 201804
